FAERS Safety Report 6425214-0 (Version None)
Quarter: 2009Q4

REPORT INFORMATION
  Report Type: 
  Country: None (occurrence: None)
  Receive Date: 20091029
  Receipt Date: 20081029
  Transmission Date: 20100525
  Serious: Yes (Other)
  Sender: FDA-Public Use
  Company Number: 179716USA

PATIENT

DRUGS (1)
  1. MESALAZINE RECTAL SUSPENSION USP (ENEMA) (MESALAZINE) [Suspect]
     Indication: COLITIS ULCERATIVE
     Dosage: 4 GM/60 ML (4 GRAM), RECTAL
     Route: 054

REACTIONS (2)
  - COLITIS ULCERATIVE [None]
  - DRUG INEFFECTIVE [None]
